FAERS Safety Report 4496364-3 (Version None)
Quarter: 2004Q4

REPORT INFORMATION
  Report Type: 
  Country: None (occurrence: None)
  Receive Date: 20041108
  Receipt Date: 20041108
  Transmission Date: 20050328
  Serious: Yes (Other)
  Sender: FDA-Public Use
  Company Number: None

PATIENT
  Sex: Male
  Weight: 2.932 kg

DRUGS (1)
  1. ERYTHROMYCIN [Suspect]
     Indication: PROPHYLAXIS
     Dates: start: 20001104, end: 20041104

REACTIONS (5)
  - APPLICATION SITE REACTION [None]
  - ERYTHEMA [None]
  - EYELID OEDEMA [None]
  - NEONATAL DISORDER [None]
  - RASH PAPULAR [None]
